FAERS Safety Report 17764595 (Version 1)
Quarter: 2020Q2

REPORT INFORMATION
  Report Type: Spontaneous
  Country: HU (occurrence: HU)
  Receive Date: 20200511
  Receipt Date: 20200511
  Transmission Date: 20200714
  Serious: Yes (Other)
  Sender: FDA-Public Use
  Company Number: HU-TEVA-2020-HU-1233865

PATIENT
  Age: 52 Year
  Sex: Male

DRUGS (5)
  1. ENTECAVIR. [Concomitant]
     Active Substance: ENTECAVIR
     Indication: HEPATITIS B REACTIVATION
     Route: 065
  2. METHOTREXATE. [Suspect]
     Active Substance: METHOTREXATE
     Indication: BING-NEEL SYNDROME
     Route: 037
  3. RITUXIMAB. [Suspect]
     Active Substance: RITUXIMAB
     Indication: BING-NEEL SYNDROME
     Route: 037
  4. DEXAMETHASONE. [Suspect]
     Active Substance: DEXAMETHASONE
     Indication: BING-NEEL SYNDROME
     Route: 037
  5. CYTARABINE. [Suspect]
     Active Substance: CYTARABINE
     Indication: BING-NEEL SYNDROME
     Route: 037

REACTIONS (1)
  - Arachnoiditis [Recovering/Resolving]
